FAERS Safety Report 20414939 (Version 4)
Quarter: 2022Q2

REPORT INFORMATION
  Report Type: Spontaneous
  Country: GB (occurrence: GB)
  Receive Date: 20220202
  Receipt Date: 20220624
  Transmission Date: 20220721
  Serious: Yes (Congenital Anomaly, Other)
  Sender: FDA-Public Use
  Company Number: GB-AUROBINDO-AUR-APL-2009-01646

PATIENT

DRUGS (10)
  1. ONDANSETRON [Suspect]
     Active Substance: ONDANSETRON
     Indication: Vomiting
     Dosage: 4 MILLIGRAM, ONCE A DAY
     Route: 064
     Dates: start: 20080112, end: 20080114
  2. ONDANSETRON [Suspect]
     Active Substance: ONDANSETRON
     Dosage: 4 MILLIGRAM, ONCE A DAY
     Route: 064
     Dates: start: 20080114
  3. ONDANSETRON [Suspect]
     Active Substance: ONDANSETRON
     Indication: Vomiting
     Dosage: 8 MILLIGRAM, ONCE A DAY
     Route: 064
     Dates: start: 20080112, end: 20080114
  4. ONDANSETRON [Suspect]
     Active Substance: ONDANSETRON
     Dosage: 12 MILLIGRAM, ONCE A DAY, (4 MILLIGRAM, TID (PARENT ROUTE IS IV/IM/ORAL), )
     Route: 064
     Dates: start: 20080114
  5. CYCLIZINE [Concomitant]
     Active Substance: CYCLIZINE
     Indication: Foetal exposure during pregnancy
     Dosage: 150 MILLIGRAM, ONCE A DAY
     Route: 064
     Dates: start: 20080109, end: 20080114
  6. FOLIC ACID [Concomitant]
     Active Substance: FOLIC ACID
     Indication: Foetal exposure during pregnancy
     Dosage: 5 MILLIGRAM, ONCE A DAY
     Route: 064
     Dates: start: 200801
  7. METOCLOPRAMIDE [Concomitant]
     Active Substance: METOCLOPRAMIDE
     Indication: Foetal exposure during pregnancy
     Dosage: MATERNAL DOSE: 10 MG, TID
     Route: 064
     Dates: start: 20080109, end: 20080115
  8. METOCLOPRAMIDE [Concomitant]
     Active Substance: METOCLOPRAMIDE
     Dosage: 30 MILLIGRAM, ONCE A DAY
     Route: 064
     Dates: start: 20080116
  9. PROMETHAZINE [Concomitant]
     Active Substance: PROMETHAZINE HYDROCHLORIDE
     Indication: Foetal exposure during pregnancy
     Dosage: 75 MILLIGRAM, ONCE A DAY
     Route: 064
     Dates: start: 20080109, end: 20080110
  10. THIAMINE [Concomitant]
     Active Substance: THIAMINE
     Indication: Foetal exposure during pregnancy
     Dosage: 25 MILLIGRAM, ONCE A DAY
     Route: 064
     Dates: start: 20080114

REACTIONS (7)
  - Foetal exposure during pregnancy [Recovered/Resolved]
  - Gastroschisis [Unknown]
  - Foetal growth restriction [Unknown]
  - Foetal malformation [Unknown]
  - Maternal drugs affecting foetus [Unknown]
  - Heart disease congenital [Unknown]
  - Spinal deformity [Unknown]

NARRATIVE: CASE EVENT DATE: 20071101
